FAERS Safety Report 20913296 (Version 1)
Quarter: 2022Q2

REPORT INFORMATION
  Report Type: Spontaneous
  Country: US (occurrence: US)
  Receive Date: 20220603
  Receipt Date: 20220603
  Transmission Date: 20220721
  Serious: Yes (Other)
  Sender: FDA-Public Use
  Company Number: US-PFIZER INC-202200784874

PATIENT
  Age: 53 Year
  Sex: Female

DRUGS (1)
  1. PAXLOVID [Suspect]
     Active Substance: NIRMATRELVIR\RITONAVIR
     Indication: COVID-19 treatment
     Dosage: UNK
     Dates: start: 20220503, end: 20220508

REACTIONS (10)
  - Oxygen saturation decreased [Recovering/Resolving]
  - Heart rate increased [Recovering/Resolving]
  - Confusional state [Recovering/Resolving]
  - Anxiety [Recovering/Resolving]
  - Affective disorder [Recovering/Resolving]
  - Mental disorder [Recovering/Resolving]
  - Gastrointestinal disorder [Recovering/Resolving]
  - Headache [Recovering/Resolving]
  - Nausea [Recovering/Resolving]
  - Constipation [Recovering/Resolving]

NARRATIVE: CASE EVENT DATE: 20220505
